FAERS Safety Report 4472016-0 (Version None)
Quarter: 2004Q3

REPORT INFORMATION
  Report Type: 
  Country: None (occurrence: None)
  Receive Date: 20040909
  Receipt Date: 20040604
  Transmission Date: 20050211
  Serious: Yes (Life-Threatening)
  Sender: FDA-Public Use
  Company Number: F03200400049

PATIENT
  Age: 45 Year
  Sex: Male
  Weight: 115.9 kg

DRUGS (9)
  1. OXALIPLATIN [Suspect]
     Indication: COLORECTAL CANCER METASTATIC
     Dosage: INTRAVENOUS NOS
     Route: 042
     Dates: start: 20040429, end: 20040429
  2. PTK7/ZK 222584 VS. PLACEBO [Suspect]
     Indication: COLORECTAL CANCER METASTATIC
     Dates: start: 20040108
  3. FLUOROURACIL [Concomitant]
  4. LEUCOVORIN [Concomitant]
  5. CALCIUM CARBONATE [Concomitant]
  6. LORAZEPAM [Concomitant]
  7. CORTICOSTEROIDS [Concomitant]
  8. ONDANSETRON HCL [Concomitant]
  9. ZOLENDRONIC ACID [Concomitant]

REACTIONS (4)
  - ANAPHYLACTIC REACTION [None]
  - FLUSHING [None]
  - RASH [None]
  - SWELLING FACE [None]
